FAERS Safety Report 14305003 (Version 1)
Quarter: 2017Q4

REPORT INFORMATION
  Report Type: Spontaneous
  Country: JP (occurrence: JP)
  Receive Date: 20171219
  Receipt Date: 20171219
  Transmission Date: 20180321
  Serious: Yes (Other)
  Sender: FDA-Public Use
  Company Number: JP-OTSUKA-03100-JPN-07-0091

PATIENT
  Sex: Female

DRUGS (5)
  1. PAXIL [Concomitant]
     Active Substance: PAROXETINE HYDROCHLORIDE
     Indication: PANIC ATTACK
     Dosage: 40 MG, QD
     Route: 048
  2. ABILIFY [Suspect]
     Active Substance: ARIPIPRAZOLE
     Indication: AFFECTIVE DISORDER
     Dosage: UNK
     Route: 048
     Dates: start: 20060715, end: 20060901
  3. ABILIFY [Suspect]
     Active Substance: ARIPIPRAZOLE
     Dosage: UNK
     Route: 048
     Dates: start: 20060902
  4. RIVOTRIL [Concomitant]
     Active Substance: CLONAZEPAM
     Indication: PANIC ATTACK
     Dosage: 12 MG, QD
     Route: 048
  5. JUVELA [Concomitant]
     Active Substance: .ALPHA.-TOCOPHEROL\RETINOL
     Indication: PERIPHERAL COLDNESS
     Dosage: 50 MG, QD
     Route: 048

REACTIONS (5)
  - Normal newborn [Unknown]
  - Exposure during breast feeding [Unknown]
  - Abortion induced [Unknown]
  - Exposure during pregnancy [Unknown]
  - Exposure during pregnancy [Recovered/Resolved]
